FAERS Safety Report 13540565 (Version 2)
Quarter: 2017Q2

REPORT INFORMATION
  Report Type: Spontaneous
  Country: JP (occurrence: JP)
  Receive Date: 20170512
  Receipt Date: 20170612
  Transmission Date: 20170830
  Serious: Yes (Other)
  Sender: FDA-Public Use
  Company Number: JP-PFIZER INC-2017204614

PATIENT
  Age: 66 Year
  Sex: Female

DRUGS (7)
  1. PREDONINE [Suspect]
     Active Substance: PREDNISOLONE
     Dosage: 5 MG, 1X/DAY
     Route: 048
     Dates: start: 20150826
  2. ADCIRCA [Suspect]
     Active Substance: TADALAFIL
     Dosage: 20 MG, 2X/DAY
     Route: 048
     Dates: start: 20151021, end: 20151117
  3. REVATIO [Suspect]
     Active Substance: SILDENAFIL CITRATE
     Indication: VASCULAR INSUFFICIENCY
     Dosage: 20 MG, 1X/DAY
     Route: 048
     Dates: start: 20151209, end: 20170509
  4. PROGRAF [Concomitant]
     Active Substance: TACROLIMUS\TACROLIMUS ANHYDROUS
     Indication: SYSTEMIC LUPUS ERYTHEMATOSUS
     Dosage: 1 CAPSULE, 1X/DAY
     Route: 048
     Dates: start: 20150924
  5. PREDONINE [Suspect]
     Active Substance: PREDNISOLONE
     Dosage: 7.5 MG, 1X/DAY
     Route: 048
     Dates: start: 20130301, end: 20130611
  6. ADCIRCA [Suspect]
     Active Substance: TADALAFIL
     Indication: VASCULAR INSUFFICIENCY
     Dosage: 20 MG, 1X/DAY
     Route: 048
     Dates: start: 20150601, end: 20150623
  7. PREDONINE [Suspect]
     Active Substance: PREDNISOLONE
     Dosage: 5 MG, 2X/DAY
     Route: 048
     Dates: start: 20130107, end: 20130228

REACTIONS (3)
  - Myalgia [Unknown]
  - Visual acuity reduced [Not Recovered/Not Resolved]
  - Product use in unapproved indication [Not Recovered/Not Resolved]

NARRATIVE: CASE EVENT DATE: 201510
